FAERS Safety Report 20659349 (Version 1)
Quarter: 2022Q1

REPORT INFORMATION
  Report Type: Spontaneous
  Country: MY (occurrence: MY)
  Receive Date: 20220331
  Receipt Date: 20220331
  Transmission Date: 20220423
  Serious: Yes (Other)
  Sender: FDA-Public Use
  Company Number: MY-NOVARTISPH-NVSC2021MY291888

PATIENT
  Age: 67 Year
  Sex: Male

DRUGS (1)
  1. BROLUCIZUMAB [Suspect]
     Active Substance: BROLUCIZUMAB
     Indication: Choroidal neovascularisation
     Dosage: UNK
     Route: 065

REACTIONS (5)
  - Vitritis [Unknown]
  - Vitreous floaters [Recovered/Resolved]
  - Visual acuity reduced [Recovered/Resolved]
  - Uveitis [Recovered/Resolved]
  - Product use in unapproved indication [Unknown]
